FAERS Safety Report 9837835 (Version 1)
Quarter: 2014Q1

REPORT INFORMATION
  Report Type: Spontaneous
  Country: US (occurrence: US)
  Receive Date: 20140123
  Receipt Date: 20140123
  Transmission Date: 20141002
  Serious: No
  Sender: FDA-Public Use
  Company Number: US-009507513-1401USA004011

PATIENT
  Sex: Female

DRUGS (1)
  1. DULERA [Suspect]
     Dosage: UNK
     Dates: start: 20140107

REACTIONS (2)
  - Pulmonary function test decreased [Not Recovered/Not Resolved]
  - Incorrect product storage [Unknown]
